FAERS Safety Report 4891848-8 (Version None)
Quarter: 2006Q1

REPORT INFORMATION
  Report Type: 
  Country: None (occurrence: None)
  Receive Date: 20060126
  Receipt Date: 20060123
  Transmission Date: 20060701
  Serious: Yes (Other)
  Sender: FDA-Public Use
  Company Number: 2006UW01133

PATIENT
  Sex: Male

DRUGS (2)
  1. IRESSA [Suspect]
     Route: 048
  2. IRESSA [Suspect]
     Route: 048
     Dates: start: 20060101

REACTIONS (2)
  - ABDOMINAL OPERATION [None]
  - DIARRHOEA [None]
